FAERS Safety Report 7130276-1 (Version None)
Quarter: 2010Q4

REPORT INFORMATION
  Report Type: 
  Country: None (occurrence: None)
  Receive Date: 20101116
  Receipt Date: 20101102
  Transmission Date: 20110411
  Serious: Yes (Other)
  Sender: FDA-Public Use
  Company Number: 751642

PATIENT
  Age: 56 Year
  Sex: Female

DRUGS (6)
  1. PACLITAXEL [Suspect]
     Indication: OVARIAN CANCER
     Dosage: 290 MG MILLIGRAM(S), INTRAVENOUS (NOT OTHERWISE SPECIFIED)
     Route: 042
     Dates: start: 20101026, end: 20101026
  2. CARBOPLATIN [Concomitant]
  3. (TRIMETON /00072502/) [Concomitant]
  4. RANIDIL) [Concomitant]
  5. (NAVOBAN) [Concomitant]
  6. DEXAMETHASONE [Concomitant]

REACTIONS (3)
  - HOT FLUSH [None]
  - INFUSION RELATED REACTION [None]
  - PAIN [None]
